FAERS Safety Report 24975642 (Version 1)
Quarter: 2025Q1

REPORT INFORMATION
  Report Type: Spontaneous
  Country: PT (occurrence: PT)
  Receive Date: 20250217
  Receipt Date: 20250217
  Transmission Date: 20250408
  Serious: Yes (Hospitalization)
  Sender: JOHNSON AND JOHNSON
  Company Number: PT-BAYER-2025A019906

PATIENT
  Age: 70 Year

DRUGS (1)
  1. XARELTO [Suspect]
     Active Substance: RIVAROXABAN
     Indication: Pulmonary embolism
     Route: 048

REACTIONS (5)
  - Renal haemorrhage [Unknown]
  - Pulmonary haemorrhage [Unknown]
  - Anticoagulant-related nephropathy [Unknown]
  - Post infection glomerulonephritis [Unknown]
  - Acute kidney injury [Unknown]
